FAERS Safety Report 7769454-7 (Version None)
Quarter: 2011Q3

REPORT INFORMATION
  Report Type: 
  Country: None (occurrence: None)
  Receive Date: 20110922
  Receipt Date: 20110715
  Transmission Date: 20111222
  Serious: No
  Sender: FDA-Public Use
  Company Number: US-ASTRAZENECA-2011SE42585

PATIENT
  Age: 31 Year
  Sex: Female
  Weight: 47.6 kg

DRUGS (5)
  1. SEROQUEL XR [Suspect]
     Indication: BIPOLAR DISORDER
     Route: 048
  2. GUANFACINE HYDROCHLORIDE [Concomitant]
     Indication: AFFECTIVE DISORDER
  3. KLONOPIN [Concomitant]
     Indication: BIPOLAR DISORDER
  4. TOPAMAX [Concomitant]
     Indication: BIPOLAR DISORDER
  5. VYVANSE [Concomitant]
     Indication: BIPOLAR DISORDER

REACTIONS (2)
  - DRUG INEFFECTIVE [None]
  - BIPOLAR DISORDER [None]
